FAERS Safety Report 19129216 (Version 4)
Quarter: 2021Q3

REPORT INFORMATION
  Report Type: Spontaneous
  Country: JP (occurrence: JP)
  Receive Date: 20210413
  Receipt Date: 20210805
  Transmission Date: 20211014
  Serious: Yes (Life-Threatening, Other)
  Sender: FDA-Public Use
  Company Number: JP-NOVOPROD-798970

PATIENT
  Age: 67 Year
  Sex: Male
  Weight: 81.2 kg

DRUGS (9)
  1. METFORMIN HYDROCHLORIDE. [Concomitant]
     Active Substance: METFORMIN HYDROCHLORIDE
     Indication: TYPE 2 DIABETES MELLITUS
     Dosage: 500MG, AFTER BREAKFAST AND SUPPER
     Route: 048
     Dates: start: 20191108
  2. BAYASPIRIN [Concomitant]
     Active Substance: ASPIRIN
     Indication: ANGINA PECTORIS
     Dosage: 100MG, AFTER BREAKFAST
     Route: 048
     Dates: start: 20180727
  3. NEXIUM I.V. [Concomitant]
     Active Substance: ESOMEPRAZOLE SODIUM
     Indication: PRODUCT USED FOR UNKNOWN INDICATION
     Dosage: 10MG, AFTER BREAKFAST
     Route: 048
     Dates: start: 20180727
  4. VITAMEDIN [BENFOTIAMINE;CYANOCOBALAMIN;PYRIDOXINE HYDROCHLORIDE] [Concomitant]
     Indication: PRODUCT USED FOR UNKNOWN INDICATION
     Dosage: 3DF, AFTER EVERY MEALS
     Route: 048
     Dates: start: 20130913
  5. ADALAT [Concomitant]
     Active Substance: NIFEDIPINE
     Indication: HYPERTENSION
     Dosage: 40MG, AFTER BREAKFAST
     Route: 048
     Dates: start: 20190401
  6. GLIMEPIRIDE. [Concomitant]
     Active Substance: GLIMEPIRIDE
     Indication: TYPE 2 DIABETES MELLITUS
     Dosage: 0.5MG, AFTER SUPPER
     Route: 048
     Dates: start: 20121019
  7. PROMAC [POLAPREZINC] [Concomitant]
     Active Substance: POLAPREZINC
     Indication: PRODUCT USED FOR UNKNOWN INDICATION
     Dosage: 150MG, AT MORNING AND BEFORE BEDTIME
     Route: 048
     Dates: start: 20130913
  8. RYBELSUS [Suspect]
     Active Substance: SEMAGLUTIDE
     Indication: TYPE 2 DIABETES MELLITUS
     Dosage: 3 MG, QD
     Route: 048
     Dates: start: 20210219
  9. MAINTATE [Concomitant]
     Active Substance: BISOPROLOL FUMARATE
     Indication: ANGINA PECTORIS
     Dosage: 5MG, AFTER BREAKFAST
     Route: 048
     Dates: start: 20180727

REACTIONS (5)
  - Tooth extraction [Unknown]
  - Ventricular extrasystoles [Recovered/Resolved]
  - Ventricular extrasystoles [Unknown]
  - Nausea [Unknown]
  - Decreased appetite [Recovering/Resolving]

NARRATIVE: CASE EVENT DATE: 202103
